FAERS Safety Report 25988636 (Version 1)
Quarter: 2025Q4

REPORT INFORMATION
  Report Type: Spontaneous
  Country: US (occurrence: US)
  Receive Date: 20251103
  Receipt Date: 20251103
  Transmission Date: 20260118
  Serious: Yes (Hospitalization, Other)
  Sender: BRISTOL-MYERS SQUIBB COMPANY
  Company Number: US-BRISTOL-MYERS SQUIBB COMPANY-2025-146442

PATIENT
  Age: 67 Year
  Sex: Female
  Weight: 82.1 kg

DRUGS (37)
  1. POMALYST [Suspect]
     Active Substance: POMALIDOMIDE
     Indication: Plasma cell myeloma
     Dosage: DAILY X 21 DAYS
     Route: 048
     Dates: start: 20250612, end: 20250718
  2. POMALYST [Suspect]
     Active Substance: POMALIDOMIDE
     Dosage: DAILY X 21 DAYS
     Route: 048
     Dates: start: 20250829, end: 20250912
  3. DARZALEX FASPRO [Suspect]
     Active Substance: DARATUMUMAB\HYALURONIDASE-FIHJ
     Indication: Plasma cell myeloma
     Dosage: 1,800MG/30,000 UNITS VIAL SQ QWK X 2 CYCLES, Q2WKS X 4 CYCLES, Q 4 WKS X 6 CYCLES Q 28 DAYS
     Route: 058
     Dates: start: 20250612, end: 20250718
  4. DECADRON [Suspect]
     Active Substance: DEXAMETHASONE
     Indication: Plasma cell myeloma
     Dates: start: 20250612, end: 20250718
  5. DECADRON [Suspect]
     Active Substance: DEXAMETHASONE
     Dosage: 12 CYCLES
     Dates: start: 20250829, end: 20250912
  6. KYPROLIS [Suspect]
     Active Substance: CARFILZOMIB
     Indication: Plasma cell myeloma
     Dosage: FREQUENCY: DAY1, 2, 8, 9, 15, 16 (20 MG/M^2 C1 D1 AND D2) X 6 CYCLES F/B 27 MG/M^2 D1, 2, 15 AND 16
     Route: 042
     Dates: start: 20250829, end: 20250912
  7. ACYCLOVIR [Concomitant]
     Active Substance: ACYCLOVIR
     Indication: Product used for unknown indication
  8. ALPRAZOLAM [Concomitant]
     Active Substance: ALPRAZOLAM
     Indication: Anxiety
     Dosage: TAKE 1 PO BID PRN
  9. CYMBALTA [Concomitant]
     Active Substance: DULOXETINE HYDROCHLORIDE
     Indication: Product used for unknown indication
     Dosage: DELAYED RELEASE
  10. DARZALEX FASPRO [Concomitant]
     Active Substance: DARATUMUMAB\HYALURONIDASE-FIHJ
     Indication: Product used for unknown indication
     Dosage: 1,800 MG-30,000 UNIT/15 ML SUBCUTANEOUS SOLUTION
     Route: 058
  11. DILAUDID [Concomitant]
     Active Substance: HYDROMORPHONE HYDROCHLORIDE
     Indication: Product used for unknown indication
  12. DULOXETINE [Concomitant]
     Active Substance: DULOXETINE
     Indication: Product used for unknown indication
     Dosage: TAKE 1 CAPSULE BY MOUTH ONCE DAILY
  13. FAMOTIDINE [Concomitant]
     Active Substance: FAMOTIDINE
     Indication: Product used for unknown indication
     Route: 048
  14. INDOMETHACIN [Concomitant]
     Active Substance: INDOMETHACIN
     Indication: Product used for unknown indication
  15. LEVOTHYROXINE [Concomitant]
     Active Substance: LEVOTHYROXINE
     Indication: Product used for unknown indication
     Dates: start: 2024
  16. LYRICA [Concomitant]
     Active Substance: PREGABALIN
     Indication: Product used for unknown indication
     Route: 048
  17. METHOCARBAMOL [Concomitant]
     Active Substance: METHOCARBAMOL
     Indication: Product used for unknown indication
  18. MONTELUKAST [Concomitant]
     Active Substance: MONTELUKAST
     Indication: Product used for unknown indication
  19. MORPHINE [Concomitant]
     Active Substance: MORPHINE
     Indication: Product used for unknown indication
     Dosage: 15 MG IMMEDIATE RELEASE TABLET
  20. MORPHINE [Concomitant]
     Active Substance: MORPHINE
     Dosage: ER 30 MG TABLET,EXTENDED RELEASE
  21. PROCHLORPERAZINE MALEATE [Concomitant]
     Active Substance: PROCHLORPERAZINE MALEATE
     Indication: Nausea
     Dosage: TAKE 1 TABLET EVERY 6-8 HOURS AS NEEDED
     Route: 048
  22. RESTASIS [Concomitant]
     Active Substance: CYCLOSPORINE
     Indication: Product used for unknown indication
     Dosage: EYE DROPS IN A DROPPERETTE, 1 DROP BOTH EYES
  23. VITAL TEARS [Concomitant]
     Indication: Product used for unknown indication
  24. ZOLPIDEM [Concomitant]
     Active Substance: ZOLPIDEM TARTRATE
     Indication: Insomnia
     Dosage: TAKE 1 TABLET BY MOUTH AT BEDTIME
     Route: 048
  25. APIXABAN [Concomitant]
     Active Substance: APIXABAN
     Indication: Product used for unknown indication
     Dosage: TAKE ONE TABLET BY MOUTH TWICE A DAY
  26. FENTANYL [Concomitant]
     Active Substance: FENTANYL
     Indication: Product used for unknown indication
     Dosage: DOSE: 75 MCG/HR, APPLY ONE PATCH TO SKIN. REMOVE EVERY 72 HOURS (3 DAYS) AND APPLY NEW PATCH. PDMP QUERIED PRIOR TO FILLING OUT THIS?SCRIPT.
  27. FLUCONAZOLE [Concomitant]
     Active Substance: FLUCONAZOLE
     Indication: Product used for unknown indication
     Dosage: 1 P.O. TWICE A DAY (BID)
     Route: 048
  28. LIDOCAINE [Concomitant]
     Active Substance: LIDOCAINE
     Indication: Back pain
     Dosage: APPLY ONE PATCH TO LOWER BACK DAILY
  29. ONDANSETRON HYDROCHLORIDE [Concomitant]
     Active Substance: ONDANSETRON HYDROCHLORIDE
     Indication: Nausea
     Dosage: TAKE ONE TABLET EVERY 8HRS AS NEEDED
     Route: 048
  30. SULFATRIM [Concomitant]
     Active Substance: SULFAMETHOXAZOLE\TRIMETHOPRIM
     Indication: Product used for unknown indication
     Dosage: 200 MG-40 MG/5 ML ORAL SUSPENSION, TAKE 20ML ONCE DAILY
  31. TRIAMCINOLONE ACETONIDE [Concomitant]
     Active Substance: TRIAMCINOLONE ACETONIDE
     Indication: Rash
     Dosage: APPLY TO AFFECTED AREA TID AS NEEDED TO?RASH
  32. VALACYCLOVIR [Concomitant]
     Active Substance: VALACYCLOVIR HYDROCHLORIDE
     Indication: Product used for unknown indication
     Dosage: 1 P.O. TWICE A DAY (BID)
     Route: 048
  33. PEPCID [Concomitant]
     Active Substance: FAMOTIDINE
     Indication: Gastrooesophageal reflux disease
  34. PROTONIX [Concomitant]
     Active Substance: PANTOPRAZOLE SODIUM
     Indication: Gastrooesophageal reflux disease
  35. SENNA [Concomitant]
     Active Substance: SENNOSIDES
     Indication: Constipation
  36. MIRALAX [Concomitant]
     Active Substance: POLYETHYLENE GLYCOL 3350
     Indication: Constipation
  37. BACLOFEN [Concomitant]
     Active Substance: BACLOFEN
     Indication: Hiccups

REACTIONS (16)
  - Pancytopenia [Recovering/Resolving]
  - Fall [Unknown]
  - Pain [Recovering/Resolving]
  - Pruritus [Recovering/Resolving]
  - Nausea [Unknown]
  - Hyponatraemia [Unknown]
  - Hypokalaemia [Unknown]
  - Hypocalcaemia [Unknown]
  - Hypoalbuminaemia [Unknown]
  - Adjustment disorder with mixed anxiety and depressed mood [Unknown]
  - Mucosal inflammation [Unknown]
  - Gastrooesophageal reflux disease [Unknown]
  - Malnutrition [Recovered/Resolved]
  - Hiccups [Unknown]
  - Constipation [Unknown]
  - Plasma cell myeloma [Unknown]

NARRATIVE: CASE EVENT DATE: 20250813
